FAERS Safety Report 12067697 (Version 1)
Quarter: 2016Q1

REPORT INFORMATION
  Report Type: Spontaneous
  Country: US (occurrence: None)
  Receive Date: 20160210
  Receipt Date: 20160210
  Transmission Date: 20160526
  Serious: No
  Sender: FDA-Public Use
  Company Number: None

PATIENT
  Age: 11 Year
  Sex: Female
  Weight: 61.24 kg

DRUGS (1)
  1. ZOLOFT [Suspect]
     Active Substance: SERTRALINE HYDROCHLORIDE
     Indication: ANXIETY
     Dosage: 1 ONCE DAILY TAKEN BY MOUTH
     Route: 048
     Dates: start: 20150401, end: 20151220

REACTIONS (6)
  - Rash pruritic [None]
  - Scratch [None]
  - Folliculitis [None]
  - Drug ineffective [None]
  - Scar [None]
  - Rash [None]

NARRATIVE: CASE EVENT DATE: 20150501
